FAERS Safety Report 13881629 (Version 1)
Quarter: 2017Q3

REPORT INFORMATION
  Report Type: Spontaneous
  Country: US (occurrence: US)
  Receive Date: 20170818
  Receipt Date: 20170818
  Transmission Date: 20171127
  Serious: No
  Sender: FDA-Public Use
  Company Number: US-ASTRAZENECA-2017SE82339

PATIENT
  Sex: Female
  Weight: 77.1 kg

DRUGS (19)
  1. SYMBICORT [Suspect]
     Active Substance: BUDESONIDE\FORMOTEROL FUMARATE DIHYDRATE
     Indication: SLUGGISHNESS
     Dosage: 160-4.5 MCG TWO PUFFS IN THE MORNING
     Route: 055
  2. TRAMADOL. [Concomitant]
     Active Substance: TRAMADOL
     Indication: ARTHRITIS
     Route: 048
  3. NOVOLOG [Concomitant]
     Active Substance: INSULIN ASPART
     Dosage: PEN, 30 UNITS, BEFORE SHE EATS, BEFORE EACH MEAL
  4. BUSPIRONE [Concomitant]
     Active Substance: BUSPIRONE HYDROCHLORIDE
  5. SYMBICORT [Suspect]
     Active Substance: BUDESONIDE\FORMOTEROL FUMARATE DIHYDRATE
     Indication: FATIGUE
     Dosage: 160-4.5 MCG TWO PUFFS IN THE MORNING
     Route: 055
  6. BUSPAR [Concomitant]
     Active Substance: BUSPIRONE HYDROCHLORIDE
  7. VALIUM [Concomitant]
     Active Substance: DIAZEPAM
     Dosage: 5 MG TWO TIMES A DAY OR THREE TIMES A DAY
  8. SYMBICORT [Suspect]
     Active Substance: BUDESONIDE\FORMOTEROL FUMARATE DIHYDRATE
     Indication: DYSPNOEA
     Dosage: 160-4.5 MCG TWO PUFFS IN THE MORNING
     Route: 055
  9. SYMBICORT [Suspect]
     Active Substance: BUDESONIDE\FORMOTEROL FUMARATE DIHYDRATE
     Indication: LAZINESS
     Dosage: 160-4.5 MCG TWO PUFFS IN THE MORNING
     Route: 055
  10. SYMBICORT [Suspect]
     Active Substance: BUDESONIDE\FORMOTEROL FUMARATE DIHYDRATE
     Indication: DYSPNOEA
     Dosage: 160-4.5 MCG UNKNOWN UNKNOWN
     Route: 055
  11. FUROSEMIDE. [Concomitant]
     Active Substance: FUROSEMIDE
     Indication: OEDEMA
     Route: 048
  12. PROAIR HFA [Concomitant]
     Active Substance: ALBUTEROL SULFATE
     Dosage: IF NECESSARY
  13. SYMBICORT [Suspect]
     Active Substance: BUDESONIDE\FORMOTEROL FUMARATE DIHYDRATE
     Indication: FATIGUE
     Dosage: 160-4.5 MCG UNKNOWN UNKNOWN
     Route: 055
  14. SYMBICORT [Suspect]
     Active Substance: BUDESONIDE\FORMOTEROL FUMARATE DIHYDRATE
     Indication: LAZINESS
     Dosage: 160-4.5 MCG UNKNOWN UNKNOWN
     Route: 055
  15. TOUJEO [Concomitant]
     Active Substance: INSULIN GLARGINE
  16. PROZAC [Concomitant]
     Active Substance: FLUOXETINE HYDROCHLORIDE
  17. SYMBICORT [Suspect]
     Active Substance: BUDESONIDE\FORMOTEROL FUMARATE DIHYDRATE
     Indication: SLUGGISHNESS
     Dosage: 160-4.5 MCG UNKNOWN UNKNOWN
     Route: 055
  18. FIORICET [Concomitant]
     Active Substance: ACETAMINOPHEN\BUTALBITAL\CAFFEINE
     Indication: MIGRAINE
     Dosage: GENERIC
     Route: 048
  19. TRAMADOL. [Concomitant]
     Active Substance: TRAMADOL
     Indication: RHEUMATIC DISORDER
     Route: 048

REACTIONS (19)
  - Decreased appetite [Not Recovered/Not Resolved]
  - Humidity intolerance [Unknown]
  - Head discomfort [Not Recovered/Not Resolved]
  - Weight increased [Not Recovered/Not Resolved]
  - Dyspnoea [Not Recovered/Not Resolved]
  - Tremor [Not Recovered/Not Resolved]
  - Anxiety [Not Recovered/Not Resolved]
  - Irritable bowel syndrome [Not Recovered/Not Resolved]
  - Fall [Not Recovered/Not Resolved]
  - Speech disorder [Not Recovered/Not Resolved]
  - Panic attack [Not Recovered/Not Resolved]
  - Fatigue [Not Recovered/Not Resolved]
  - Laziness [Not Recovered/Not Resolved]
  - Off label use [Unknown]
  - Product use in unapproved indication [Unknown]
  - Intentional product use issue [Unknown]
  - Drug ineffective [Unknown]
  - Blood glucose abnormal [Not Recovered/Not Resolved]
  - Sluggishness [Not Recovered/Not Resolved]
